FAERS Safety Report 10027211 (Version 3)
Quarter: 2015Q4

REPORT INFORMATION
  Report Type: Spontaneous
  Country: GB (occurrence: GB)
  Receive Date: 20140321
  Receipt Date: 20151008
  Transmission Date: 20160304
  Serious: Yes (Death)
  Sender: FDA-Public Use
  Company Number: GB-ASTRAZENECA-2014SE19236

PATIENT
  Age: 63 Year
  Sex: Male

DRUGS (14)
  1. ACETAMINOPHEN. [Suspect]
     Active Substance: ACETAMINOPHEN
     Route: 048
  2. SINGULAIR [Suspect]
     Active Substance: MONTELUKAST SODIUM
     Route: 065
  3. ALBUTEROL. [Suspect]
     Active Substance: ALBUTEROL
     Route: 065
  4. HUMULIN NOS [Suspect]
     Active Substance: INSULIN HUMAN
     Route: 065
  5. LISINOPRIL. [Suspect]
     Active Substance: LISINOPRIL
     Route: 048
  6. SERETIDE [Suspect]
     Active Substance: FLUTICASONE FUROATE\SALMETEROL XINAFOATE
     Route: 065
  7. BUMETANIDE. [Suspect]
     Active Substance: BUMETANIDE
     Route: 065
  8. INSUMAN COMB [Suspect]
     Active Substance: INSULIN NOS
     Route: 065
  9. TRAMADOL HYDROCHLORIDE. [Suspect]
     Active Substance: TRAMADOL HYDROCHLORIDE
     Route: 048
  10. FOSAMAX [Suspect]
     Active Substance: ALENDRONATE SODIUM
     Route: 048
  11. HUMALOG [Suspect]
     Active Substance: INSULIN LISPRO
     Route: 065
  12. NYSTATIN. [Suspect]
     Active Substance: NYSTATIN
     Route: 065
  13. ISOPHANE INSULIN [Suspect]
     Active Substance: INSULIN NOS
     Route: 065
  14. SPIRIVA [Suspect]
     Active Substance: TIOTROPIUM BROMIDE MONOHYDRATE
     Indication: CHRONIC OBSTRUCTIVE PULMONARY DISEASE
     Route: 065

REACTIONS (1)
  - Pneumonia [Fatal]
